FAERS Safety Report 8437860 (Version 3)
Quarter: 2015Q1

REPORT INFORMATION
  Report Type: Spontaneous
  Country: US (occurrence: US)
  Receive Date: 20120302
  Receipt Date: 20150310
  Transmission Date: 20150721
  Serious: Yes (Other)
  Sender: FDA-Public Use
  Company Number: US-ROCHE-1044454

PATIENT
  Sex: Female

DRUGS (14)
  1. CIPROFLOXACIN. [Concomitant]
     Active Substance: CIPROFLOXACIN
  2. BONIVA [Suspect]
     Active Substance: IBANDRONATE SODIUM
     Route: 065
     Dates: start: 20060213
  3. LIPITOR [Concomitant]
     Active Substance: ATORVASTATIN CALCIUM
  4. BONIVA [Suspect]
     Active Substance: IBANDRONATE SODIUM
     Route: 065
     Dates: start: 20060413
  5. BONIVA [Suspect]
     Active Substance: IBANDRONATE SODIUM
     Route: 065
     Dates: start: 20060614
  6. MEFLOQUINE [Concomitant]
     Active Substance: MEFLOQUINE
  7. FOSAMAX [Suspect]
     Active Substance: ALENDRONATE SODIUM
     Indication: OSTEOPOROSIS
     Route: 065
  8. CLINDAMYCIN [Concomitant]
     Active Substance: CLINDAMYCIN\CLINDAMYCIN PHOSPHATE
  9. BONIVA [Suspect]
     Active Substance: IBANDRONATE SODIUM
     Indication: OSTEOPOROSIS
     Route: 065
     Dates: start: 20051102
  10. ATORVASTATIN [Concomitant]
     Active Substance: ATORVASTATIN
  11. PREMARIN [Concomitant]
     Active Substance: ESTROGENS, CONJUGATED
  12. LISINOPRIL. [Concomitant]
     Active Substance: LISINOPRIL
  13. FOLIC ACID. [Concomitant]
     Active Substance: FOLIC ACID
  14. XANAX [Concomitant]
     Active Substance: ALPRAZOLAM

REACTIONS (2)
  - Hip fracture [Unknown]
  - Femur fracture [Unknown]
